FAERS Safety Report 10012336 (Version 2)
Quarter: 2014Q2

REPORT INFORMATION
  Report Type: Report from Study
  Country: GR (occurrence: GR)
  Receive Date: 20140314
  Receipt Date: 20140618
  Transmission Date: 20141212
  Serious: Yes (Hospitalization, Other)
  Sender: FDA-Public Use
  Company Number: GR-ABBVIE-14P-066-1209755-00

PATIENT
  Age: 56 Year
  Sex: Male
  Weight: 68 kg

DRUGS (7)
  1. HUMIRA [Suspect]
     Indication: CROHN^S DISEASE
     Route: 058
     Dates: start: 20090415, end: 20090415
  2. HUMIRA [Suspect]
     Dosage: WEEK 2
     Route: 058
  3. HUMIRA [Suspect]
     Route: 058
  4. HUMIRA [Suspect]
     Route: 058
     Dates: start: 20090514, end: 20130402
  5. SALOFALK [Concomitant]
     Indication: PRODUCT USED FOR UNKNOWN INDICATION
     Dates: start: 19980610
  6. THYROHORMONE [Concomitant]
     Indication: THYROID THERAPY
     Dates: start: 20111204
  7. 5-ASA [Concomitant]
     Indication: CROHN^S DISEASE

REACTIONS (2)
  - Enteritis [Recovered/Resolved]
  - Small intestinal obstruction [Recovered/Resolved]
